FAERS Safety Report 9842360 (Version 1)
Quarter: 2014Q1

REPORT INFORMATION
  Report Type: Spontaneous
  Country: US (occurrence: US)
  Receive Date: 20140124
  Receipt Date: 20140124
  Transmission Date: 20141002
  Serious: No
  Sender: FDA-Public Use
  Company Number: US-MYLANLABS-2013S1021092

PATIENT
  Sex: Female
  Weight: 75.3 kg

DRUGS (1)
  1. NAPROXEN [Suspect]

REACTIONS (2)
  - Drug hypersensitivity [Recovered/Resolved]
  - No adverse event [Recovered/Resolved]
